FAERS Safety Report 19060398 (Version 1)
Quarter: 2021Q1

REPORT INFORMATION
  Report Type: Report from Study
  Country: None (occurrence: US)
  Receive Date: 20210326
  Receipt Date: 20210326
  Transmission Date: 20210420
  Serious: Yes (Hospitalization, Other)
  Sender: FDA-Public Use
  Company Number: US-ABBVIE-21K-163-3828288-00

PATIENT
  Age: 12 Year
  Sex: Female
  Weight: 72.64 kg

DRUGS (10)
  1. HUMIRA [Suspect]
     Active Substance: ADALIMUMAB
     Route: 058
     Dates: start: 20210309
  2. PREDNISONE. [Concomitant]
     Active Substance: PREDNISONE
     Indication: INFLAMMATION
  3. MULTIVITAMINS [Concomitant]
     Active Substance: VITAMINS
     Indication: PRODUCT USED FOR UNKNOWN INDICATION
  4. VITAMIN C [Concomitant]
     Active Substance: ASCORBIC ACID
     Indication: PRODUCT USED FOR UNKNOWN INDICATION
  5. LIALDA [Concomitant]
     Active Substance: MESALAMINE
     Indication: COLITIS
  6. HUMIRA [Suspect]
     Active Substance: ADALIMUMAB
     Indication: COLITIS ULCERATIVE
     Route: 058
     Dates: start: 202006, end: 202009
  7. ENTOCORT [Concomitant]
     Active Substance: BUDESONIDE
     Indication: INFLAMMATION
  8. HUMIRA [Suspect]
     Active Substance: ADALIMUMAB
     Indication: AUTOIMMUNE PANCREATITIS
     Route: 058
     Dates: start: 202009, end: 202103
  9. VITAMIN D [Concomitant]
     Active Substance: VITAMIN D NOS
     Indication: PRODUCT USED FOR UNKNOWN INDICATION
  10. TYLENOL [Concomitant]
     Active Substance: ACETAMINOPHEN
     Indication: PRODUCT USED FOR UNKNOWN INDICATION

REACTIONS (13)
  - Tachycardia [Not Recovered/Not Resolved]
  - Dehydration [Recovered/Resolved]
  - Drug specific antibody present [Not Recovered/Not Resolved]
  - Haematochezia [Recovering/Resolving]
  - Injection site rash [Recovered/Resolved]
  - Diarrhoea [Recovering/Resolving]
  - Malnutrition [Recovered/Resolved]
  - Mucous stools [Recovering/Resolving]
  - Nausea [Recovering/Resolving]
  - Drug clearance increased [Recovering/Resolving]
  - Abdominal pain [Recovering/Resolving]
  - Malabsorption [Recovering/Resolving]
  - Off label use [Not Recovered/Not Resolved]

NARRATIVE: CASE EVENT DATE: 2020
